FAERS Safety Report 18193229 (Version 1)
Quarter: 2020Q3

REPORT INFORMATION
  Report Type: Spontaneous
  Country: US (occurrence: US)
  Receive Date: 20200825
  Receipt Date: 20200825
  Transmission Date: 20201103
  Serious: No
  Sender: FDA-Public Use
  Company Number: US-BEH-2020121597

PATIENT
  Sex: Female

DRUGS (1)
  1. HIZENTRA [Suspect]
     Active Substance: HUMAN IMMUNOGLOBULIN G
     Dosage: 12 GRAM, TOT
     Route: 065
     Dates: start: 20200817, end: 20200817

REACTIONS (3)
  - Infusion site mass [Unknown]
  - Physical deconditioning [Unknown]
  - Infusion site pain [Unknown]

NARRATIVE: CASE EVENT DATE: 202008
